FAERS Safety Report 11781954 (Version 7)
Quarter: 2019Q1

REPORT INFORMATION
  Report Type: Spontaneous
  Country: SE (occurrence: SE)
  Receive Date: 20151126
  Receipt Date: 20190213
  Transmission Date: 20190417
  Serious: Yes (Hospitalization)
  Sender: FDA-Public Use
  Company Number: SE-009507513-1511SWE012410

PATIENT
  Age: 27 Year
  Sex: Female

DRUGS (2)
  1. NUVARING [Suspect]
     Active Substance: ETHINYL ESTRADIOL\ETONOGESTREL
     Dosage: UNK, Q3W, STRENGTH: 0120/.015 MG PER 24 HOURS
     Route: 067
     Dates: start: 20130601, end: 20151109
  2. NUVARING [Suspect]
     Active Substance: ETHINYL ESTRADIOL\ETONOGESTREL
     Indication: CONTRACEPTION
     Dosage: ONE RING EVERY THREE WEEKS, STRENGTH: 0120/.015 MG PER 24 HOURS
     Route: 067
     Dates: start: 201206

REACTIONS (14)
  - Tachycardia [Not Recovered/Not Resolved]
  - Abdominal pain [Unknown]
  - Palpitations [Not Recovered/Not Resolved]
  - Malaise [Unknown]
  - Heart rate increased [Not Recovered/Not Resolved]
  - Dyspnoea [Not Recovered/Not Resolved]
  - Nausea [Not Recovered/Not Resolved]
  - Asthenia [Unknown]
  - Abdominal discomfort [Recovered/Resolved]
  - Respiratory rate increased [Not Recovered/Not Resolved]
  - Abdominal distension [Recovered/Resolved]
  - Product quality issue [Unknown]
  - Presyncope [Unknown]
  - Tremor [Unknown]

NARRATIVE: CASE EVENT DATE: 20151105
